FAERS Safety Report 5274434-X (Version None)
Quarter: 2007Q1

REPORT INFORMATION
  Report Type: 
  Country: None (occurrence: None)
  Receive Date: 20070323
  Receipt Date: 20070313
  Transmission Date: 20070707
  Serious: Yes (Other)
  Sender: FDA-Public Use
  Company Number: JP-PFIZER INC-2007019568

PATIENT
  Age: 71 Year
  Sex: Male

DRUGS (3)
  1. ZYVOX [Suspect]
     Indication: STAPHYLOCOCCAL SEPSIS
     Dosage: DAILY DOSE:1200MG-FREQ:DAILY
     Route: 042
     Dates: start: 20070112, end: 20070215
  2. FIRSTCIN [Concomitant]
     Route: 042
     Dates: start: 20070118, end: 20070124
  3. UNASYN [Concomitant]
     Route: 042
     Dates: start: 20070118, end: 20070124

REACTIONS (3)
  - DEPRESSED LEVEL OF CONSCIOUSNESS [None]
  - PLATELET COUNT DECREASED [None]
  - WHITE BLOOD CELL COUNT DECREASED [None]
